FAERS Safety Report 7739402-4 (Version None)
Quarter: 2011Q3

REPORT INFORMATION
  Report Type: 
  Country: None (occurrence: None)
  Receive Date: 20110909
  Receipt Date: 20110831
  Transmission Date: 20111222
  Serious: Yes (Other)
  Sender: FDA-Public Use
  Company Number: JP-UCBSA-039095

PATIENT
  Age: 59 Year
  Sex: Male

DRUGS (7)
  1. TEGRETOL [Concomitant]
     Route: 048
  2. LASIX [Concomitant]
     Route: 048
     Dates: start: 20110708
  3. MYSTAN [Concomitant]
     Route: 048
  4. KEPPRA [Suspect]
     Indication: EPILEPSY
     Dosage: 2000 MG
     Route: 048
     Dates: start: 20110629, end: 20110804
  5. PHENYTOIN SODIUM CAP [Concomitant]
     Route: 048
  6. HALOPERIDOL [Concomitant]
     Route: 048
  7. DEPAKENE [Concomitant]
     Route: 048

REACTIONS (1)
  - DELIRIUM [None]
